FAERS Safety Report 5405696-3 (Version None)
Quarter: 2007Q3

REPORT INFORMATION
  Report Type: 
  Country: None (occurrence: None)
  Receive Date: 20070806
  Receipt Date: 20070801
  Transmission Date: 20080115
  Serious: Yes (Death, Hospitalization)
  Sender: FDA-Public Use
  Company Number: PHHO2005JP12902

PATIENT
  Age: 44 Year
  Sex: Male

DRUGS (5)
  1. IMATINIB MESYLATE [Suspect]
     Indication: ACUTE LYMPHOCYTIC LEUKAEMIA
     Route: 048
     Dates: start: 20030912, end: 20031011
  2. LOSARTAN POTASSIUM [Concomitant]
     Indication: AORTIC DISSECTION
  3. NORVASC [Concomitant]
     Indication: AORTIC DISSECTION
  4. PREDONINE [Suspect]
  5. AMIKACIN [Suspect]

REACTIONS (16)
  - ANURIA [None]
  - BLOOD PRESSURE INCREASED [None]
  - CHEST DISCOMFORT [None]
  - CHILLS [None]
  - DECREASED IMMUNE RESPONSIVENESS [None]
  - DYSPNOEA [None]
  - HYPOXIA [None]
  - INTERSTITIAL LUNG DISEASE [None]
  - NAUSEA [None]
  - NEUTROPENIA [None]
  - OLIGURIA [None]
  - PHARYNGOLARYNGEAL PAIN [None]
  - PNEUMONIA [None]
  - PULMONARY CONGESTION [None]
  - PYREXIA [None]
  - RENAL FAILURE ACUTE [None]
